FAERS Safety Report 19501164 (Version 1)
Quarter: 2021Q3

REPORT INFORMATION
  Report Type: Spontaneous
  Country: US (occurrence: US)
  Receive Date: 20210702
  Receipt Date: 20210702
  Transmission Date: 20211014
  Serious: Yes (Hospitalization)
  Sender: FDA-Public Use
  Company Number: None

PATIENT
  Age: 71 Year
  Sex: Male
  Weight: 120 kg

DRUGS (1)
  1. CISPLATIN. [Suspect]
     Active Substance: CISPLATIN
     Dates: end: 20210531

REACTIONS (4)
  - Pulmonary embolism [None]
  - Febrile neutropenia [None]
  - Deep vein thrombosis [None]
  - White blood cell count decreased [None]

NARRATIVE: CASE EVENT DATE: 20210613
